FAERS Safety Report 8555153-0 (Version None)
Quarter: 2012Q3

REPORT INFORMATION
  Report Type: 
  Country: None (occurrence: None)
  Receive Date: 20120731
  Receipt Date: 20120723
  Transmission Date: 20120928
  Serious: Yes (Other)
  Sender: FDA-Public Use
  Company Number: US-009507513-1207USA011177

PATIENT

DRUGS (1)
  1. ZOCOR [Suspect]

REACTIONS (2)
  - WHITE BLOOD CELL COUNT DECREASED [None]
  - BLOOD CREATINE PHOSPHOKINASE INCREASED [None]
